FAERS Safety Report 10171141 (Version 1)
Quarter: 2014Q2

REPORT INFORMATION
  Report Type: Spontaneous
  Country: DE (occurrence: DE)
  Receive Date: 20140514
  Receipt Date: 20140514
  Transmission Date: 20141212
  Serious: Yes (Hospitalization)
  Sender: FDA-Public Use
  Company Number: GXKR2014DE001871

PATIENT
  Sex: Female

DRUGS (1)
  1. TIMOLOL AT 1A PHARMA [Suspect]
     Dosage: 1 GTT, BID
     Route: 047
     Dates: start: 20131115, end: 20140310

REACTIONS (2)
  - Trigeminal neuralgia [Unknown]
  - Eye pain [Unknown]
